FAERS Safety Report 13319446 (Version 1)
Quarter: 2017Q1

REPORT INFORMATION
  Report Type: Spontaneous
  Country: US (occurrence: US)
  Receive Date: 20170309
  Receipt Date: 20170309
  Transmission Date: 20170428
  Serious: No
  Sender: FDA-Public Use
  Company Number: None

PATIENT
  Age: 67 Year
  Sex: Female
  Weight: 96.16 kg

DRUGS (1)
  1. ESTRADIOL (GENERIC) 0.5-0.1MG [Suspect]
     Active Substance: ESTRADIOL
     Indication: POSTMENOPAUSAL HAEMORRHAGE
     Dosage: 1 TAB DAILY ORAL
     Route: 048

REACTIONS (2)
  - Feeling abnormal [None]
  - Postmenopausal haemorrhage [None]
